FAERS Safety Report 24670632 (Version 1)
Quarter: 2024Q4

REPORT INFORMATION
  Report Type: Report from Study
  Country: US (occurrence: US)
  Receive Date: 20241127
  Receipt Date: 20241127
  Transmission Date: 20250114
  Serious: No
  Sender: UCB
  Company Number: US-UCBSA-2024056633

PATIENT
  Age: 44 Year
  Sex: Female

DRUGS (1)
  1. ROTIGOTINE [Suspect]
     Active Substance: ROTIGOTINE
     Indication: Product used for unknown indication

REACTIONS (8)
  - Withdrawal syndrome [Unknown]
  - Brain fog [Unknown]
  - Insomnia [Unknown]
  - Pain in extremity [Unknown]
  - Pruritus [Unknown]
  - Erythema [Unknown]
  - Product adhesion issue [Unknown]
  - Product use issue [Unknown]

NARRATIVE: CASE EVENT DATE: 20241019
